FAERS Safety Report 7329632-8 (Version None)
Quarter: 2011Q1

REPORT INFORMATION
  Report Type: 
  Country: None (occurrence: None)
  Receive Date: 20110303
  Receipt Date: 20110228
  Transmission Date: 20110831
  Serious: No
  Sender: FDA-Public Use
  Company Number: US-TEVA-269276USA

PATIENT
  Sex: Female
  Weight: 60.382 kg

DRUGS (1)
  1. PLAN B ONE-STEP [Suspect]
     Indication: POST COITAL CONTRACEPTION
     Route: 048
     Dates: start: 20110225, end: 20110225

REACTIONS (2)
  - VAGINAL DISCHARGE [None]
  - GASTROINTESTINAL SOUNDS ABNORMAL [None]
